FAERS Safety Report 10482582 (Version 1)
Quarter: 2014Q3

REPORT INFORMATION
  Report Type: Spontaneous
  Country: US (occurrence: US)
  Receive Date: 20140929
  Receipt Date: 20140929
  Transmission Date: 20150326
  Serious: No
  Sender: FDA-Public Use
  Company Number: US-ELI_LILLY_AND_COMPANY-US201409010282

PATIENT
  Sex: Female

DRUGS (1)
  1. RALOXIFENE HYDROCHLORIDE. [Suspect]
     Active Substance: RALOXIFENE HYDROCHLORIDE
     Indication: OSTEOPENIA
     Dosage: UNK UNK, QD
     Route: 065
     Dates: start: 2014, end: 20140806

REACTIONS (3)
  - Eye disorder [Unknown]
  - Muscle spasms [Unknown]
  - Pain in extremity [Unknown]
